FAERS Safety Report 12916626 (Version 1)
Quarter: 2016Q4

REPORT INFORMATION
  Report Type: Spontaneous
  Country: US (occurrence: US)
  Receive Date: 20161107
  Receipt Date: 20161107
  Transmission Date: 20170207
  Serious: No
  Sender: FDA-Public Use
  Company Number: US-JAZZ-2016-US-017247

PATIENT
  Sex: Female

DRUGS (36)
  1. DOXEPIN [Concomitant]
     Active Substance: DOXEPIN
  2. ZYPREXA ZYDIS [Concomitant]
     Active Substance: OLANZAPINE
  3. FLOVENT HFA [Concomitant]
     Active Substance: FLUTICASONE PROPIONATE
  4. OLANZAPINE. [Concomitant]
     Active Substance: OLANZAPINE
  5. PAXIL [Concomitant]
     Active Substance: PAROXETINE HYDROCHLORIDE
  6. DURAGESIC [Concomitant]
     Active Substance: FENTANYL
  7. TRANXENE T-TAB [Concomitant]
     Active Substance: CLORAZEPATE DIPOTASSIUM
  8. CALCIUM +D [Concomitant]
     Active Substance: CALCIUM\VITAMIN D
  9. BACLOFEN. [Concomitant]
     Active Substance: BACLOFEN
  10. DILAUDID [Concomitant]
     Active Substance: HYDROMORPHONE HYDROCHLORIDE
  11. LINZESS [Concomitant]
     Active Substance: LINACLOTIDE
  12. RITALIN [Concomitant]
     Active Substance: METHYLPHENIDATE HYDROCHLORIDE
  13. ALPRAZOLAM. [Concomitant]
     Active Substance: ALPRAZOLAM
  14. PROZAC [Concomitant]
     Active Substance: FLUOXETINE HYDROCHLORIDE
  15. WELLBUTRIN XL [Concomitant]
     Active Substance: BUPROPION HYDROCHLORIDE
  16. LORAZEPAM. [Concomitant]
     Active Substance: LORAZEPAM
  17. CLARITIN [Concomitant]
     Active Substance: LORATADINE
  18. EFFEXOR [Concomitant]
     Active Substance: VENLAFAXINE HYDROCHLORIDE
  19. LAMICTAL [Concomitant]
     Active Substance: LAMOTRIGINE
  20. LIDODERM [Concomitant]
     Active Substance: LIDOCAINE
  21. PROVENTIL HFA [Concomitant]
     Active Substance: ALBUTEROL SULFATE
  22. DRYSOL [Concomitant]
     Active Substance: ALUMINUM CHLORIDE
  23. FLUPHENAZINE HCL [Concomitant]
     Active Substance: FLUPHENAZINE HYDROCHLORIDE
  24. STRATTERA [Concomitant]
     Active Substance: ATOMOXETINE HYDROCHLORIDE
  25. VITAMIN D3 [Concomitant]
     Active Substance: CHOLECALCIFEROL
  26. VOLTAREN [Concomitant]
     Active Substance: DICLOFENAC SODIUM
  27. FOCALIN [Concomitant]
     Active Substance: DEXMETHYLPHENIDATE HYDROCHLORIDE
  28. LOPID [Concomitant]
     Active Substance: GEMFIBROZIL
  29. PRENATAL [Concomitant]
     Active Substance: VITAMINS
  30. XYREM [Suspect]
     Active Substance: SODIUM OXYBATE
     Indication: NARCOLEPSY
     Dosage: 3 G, BID
     Route: 048
     Dates: start: 201407, end: 201409
  31. XYREM [Suspect]
     Active Substance: SODIUM OXYBATE
     Dosage: 4.5 G, BID
     Route: 048
     Dates: start: 201409
  32. GABAPENTIN. [Concomitant]
     Active Substance: GABAPENTIN
  33. AMANTADINE [Concomitant]
     Active Substance: AMANTADINE
  34. FLONASE [Concomitant]
     Active Substance: FLUTICASONE PROPIONATE
  35. MOTRIN [Concomitant]
     Active Substance: IBUPROFEN
  36. PROVIGIL [Concomitant]
     Active Substance: MODAFINIL

REACTIONS (1)
  - Intentional product use issue [Unknown]
